FAERS Safety Report 6697004-5 (Version None)
Quarter: 2010Q2

REPORT INFORMATION
  Report Type: 
  Country: None (occurrence: None)
  Receive Date: 20100426
  Receipt Date: 20100421
  Transmission Date: 20101027
  Serious: Yes (Hospitalization)
  Sender: FDA-Public Use
  Company Number: US-BRISTOL-MYERS SQUIBB COMPANY-15074610

PATIENT
  Age: 55 Year
  Sex: Female

DRUGS (17)
  1. CISPLATIN [Suspect]
     Indication: OROPHARYNGEAL CANCER STAGE UNSPECIFIED
     Route: 042
     Dates: start: 20090526, end: 20090616
  2. MORPHINE SULFATE [Suspect]
     Dates: start: 20090615, end: 20090615
  3. RADIATION THERAPY [Suspect]
     Indication: OROPHARYNGEAL CANCER STAGE UNSPECIFIED
     Dosage: 1 DF=2GY
     Route: 065
  4. DURAGESIC-100 [Suspect]
     Dates: start: 20090608
  5. ALOXI [Concomitant]
     Dates: start: 20080526, end: 20090625
  6. EMEND [Concomitant]
     Dates: start: 20090526, end: 20090625
  7. DEXAMETHASONE [Concomitant]
     Dates: start: 20090526, end: 20090625
  8. METOCLOPRAMIDE HYDROCHLORIDE [Concomitant]
     Dates: start: 20090526
  9. ONDANSETRON [Concomitant]
     Dates: start: 20090604, end: 20090606
  10. FLUCONAZOLE [Concomitant]
     Dates: start: 20090604, end: 20090628
  11. ACETAMINOPHEN [Concomitant]
     Dates: start: 20090605
  12. ORPHENADRINE CITRATE + ACETAMINOPHEN [Concomitant]
     Dates: start: 20090608
  13. LIDOCAINE [Concomitant]
     Dates: start: 20090618, end: 20090618
  14. MAGNESIUM CITRATE [Concomitant]
     Dates: start: 20090625, end: 20090625
  15. HYDROCODONE BITARTRATE [Concomitant]
     Dates: start: 20090605
  16. LACTULOSE [Concomitant]
     Dates: start: 20090625
  17. NEULASTA [Concomitant]
     Dates: start: 20090626, end: 20090626

REACTIONS (1)
  - CONSTIPATION [None]
